FAERS Safety Report 12165788 (Version 2)
Quarter: 2016Q1

REPORT INFORMATION
  Report Type: Spontaneous
  Country: BG (occurrence: BG)
  Receive Date: 20160309
  Receipt Date: 20160317
  Transmission Date: 20160526
  Serious: Yes (Hospitalization)
  Sender: FDA-Public Use
  Company Number: PHHY2016BG029350

PATIENT
  Age: 67 Year
  Sex: Female

DRUGS (1)
  1. PROBITOR OMEPRAZOLE [Suspect]
     Active Substance: OMEPRAZOLE
     Indication: DUODENAL ULCER
     Dosage: 20 MG, ONCE/SINGLE
     Route: 048
     Dates: start: 20150110, end: 20150110

REACTIONS (3)
  - Infection [Recovered/Resolved]
  - Poisoning [Recovered/Resolved]
  - Hypersensitivity [Recovered/Resolved]

NARRATIVE: CASE EVENT DATE: 20150110
